FAERS Safety Report 17748434 (Version 2)
Quarter: 2020Q2

REPORT INFORMATION
  Report Type: Spontaneous
  Country: GB (occurrence: GB)
  Receive Date: 20200506
  Receipt Date: 20200513
  Transmission Date: 20200714
  Serious: Yes (Hospitalization, Other)
  Sender: FDA-Public Use
  Company Number: GB-US WORLDMEDS, LLC-E2B_00003290

PATIENT
  Age: 84 Year
  Sex: Female

DRUGS (4)
  1. LEVODOPA [Concomitant]
     Active Substance: LEVODOPA
     Dosage: UNKNOWN
  2. XADAGO [Suspect]
     Active Substance: SAFINAMIDE MESYLATE
  3. XADAGO [Suspect]
     Active Substance: SAFINAMIDE MESYLATE
     Indication: PARKINSON^S DISEASE
     Route: 048
     Dates: start: 201911, end: 20200417
  4. SINEMET [Concomitant]
     Active Substance: CARBIDOPA\LEVODOPA
     Dates: start: 20171128

REACTIONS (5)
  - Fall [Recovered/Resolved with Sequelae]
  - Hallucination [Unknown]
  - Dyskinesia [Unknown]
  - Coronavirus infection [Unknown]
  - Dementia [Unknown]

NARRATIVE: CASE EVENT DATE: 2020
